FAERS Safety Report 12993351 (Version 2)
Quarter: 2017Q4

REPORT INFORMATION
  Report Type: Report from Study
  Country: JP (occurrence: JP)
  Receive Date: 20161202
  Receipt Date: 20171101
  Transmission Date: 20180320
  Serious: Yes (Death, Other)
  Sender: FDA-Public Use
  Company Number: JP-BAYER-2016-226817

PATIENT
  Age: 74 Year
  Sex: Female

DRUGS (16)
  1. AMLODIN [Concomitant]
     Active Substance: AMLODIPINE BESYLATE
     Dosage: DAILY DOSE 5MG
     Route: 048
     Dates: end: 20161125
  2. ASPARA-CA [Concomitant]
     Active Substance: CALCIUM ASPARTATE
     Dosage: DAILY DOSE 400 MG
     Route: 048
  3. OPSUMIT [Concomitant]
     Active Substance: MACITENTAN
     Dosage: DAILY DOSE 5MG
     Route: 048
  4. SLOW-K [Concomitant]
     Active Substance: POTASSIUM CHLORIDE
     Dosage: DAILY DOSE 1200 MG
     Route: 048
     Dates: start: 20170104
  5. CLARITH [Concomitant]
     Active Substance: CLARITHROMYCIN
     Dosage: DAILY DOSE 200 MG
     Route: 048
  6. WARFARIN POTASSIUM [Concomitant]
     Active Substance: WARFARIN POTASSIUM
     Dosage: DAILY DOSE .5 MG
     Route: 048
     Dates: start: 20170112
  7. BLOPRESS [Concomitant]
     Active Substance: CANDESARTAN CILEXETIL
     Dosage: DAILY DOSE 2 MG
     Route: 048
  8. EVOXAC [Concomitant]
     Active Substance: CEVIMELINE HYDROCHLORIDE
     Dosage: DAILY DOSE 90 MG
     Route: 048
  9. OXYGEN. [Concomitant]
     Active Substance: OXYGEN
     Indication: PULMONARY ARTERIAL HYPERTENSION
  10. ASPARA K [Concomitant]
     Active Substance: POTASSIUM ASPARTATE
     Dosage: DAILY DOSE 600 MG
     Route: 048
     Dates: start: 20161114, end: 20170104
  11. BAYASPIRIN 100 MG [Concomitant]
     Active Substance: ASPIRIN
     Dosage: DAILY DOSE 100 MG
     Route: 048
  12. EPLERENONE. [Concomitant]
     Active Substance: EPLERENONE
     Dosage: DAILY DOSE 25MG
     Route: 048
  13. ADEMPAS [Suspect]
     Active Substance: RIOCIGUAT
     Indication: PULMONARY ARTERIAL HYPERTENSION
     Dosage: 0.5 MG, TID
     Dates: start: 20161114, end: 20161125
  14. AZOSEMIDE [Concomitant]
     Active Substance: AZOSEMIDE
     Dosage: DAILY DOSE 30 MG
     Route: 048
  15. MUCODYNE [Concomitant]
     Active Substance: CARBOCYSTEINE
     Dosage: DAILY DOSE 1500 MG
     Route: 048
  16. PREDONINE [Concomitant]
     Active Substance: PREDNISOLONE
     Dosage: DAILY DOSE 5 MG
     Route: 048

REACTIONS (3)
  - Death [Fatal]
  - Syncope [Recovered/Resolved]
  - Blood pressure decreased [Recovered/Resolved]

NARRATIVE: CASE EVENT DATE: 20161124
